FAERS Safety Report 12522604 (Version 2)
Quarter: 2016Q3

REPORT INFORMATION
  Report Type: Spontaneous
  Country: GB (occurrence: GB)
  Receive Date: 20160701
  Receipt Date: 20160719
  Transmission Date: 20161109
  Serious: Yes (Other)
  Sender: FDA-Public Use
  Company Number: GB-WATSON-2016-14156

PATIENT
  Age: 2 Year
  Sex: Female

DRUGS (4)
  1. VANCOMYCIN (UNKNOWN) [Suspect]
     Active Substance: VANCOMYCIN
     Dosage: 250 MG, UNK
     Route: 042
     Dates: start: 20151223, end: 20151224
  2. VANCOMYCIN (UNKNOWN) [Suspect]
     Active Substance: VANCOMYCIN
     Dosage: 150 MG, UNK
     Route: 042
     Dates: start: 20151222, end: 20151223
  3. VANCOMYCIN (UNKNOWN) [Suspect]
     Active Substance: VANCOMYCIN
     Dosage: 400 MG, UNK
     Route: 042
     Dates: start: 20151224, end: 20151225
  4. VANCOMYCIN (UNKNOWN) [Suspect]
     Active Substance: VANCOMYCIN
     Indication: PYREXIA
     Dosage: 600 MG, UNK
     Route: 042
     Dates: start: 20151225, end: 20151226

REACTIONS (2)
  - Renal impairment [Not Recovered/Not Resolved]
  - Hyperkalaemia [Unknown]

NARRATIVE: CASE EVENT DATE: 20151226
